FAERS Safety Report 8286408-5 (Version None)
Quarter: 2012Q2

REPORT INFORMATION
  Report Type: 
  Country: None (occurrence: None)
  Receive Date: 20120411
  Receipt Date: 20120411
  Transmission Date: 20120825
  Serious: Yes (Life-Threatening)
  Sender: FDA-Public Use
  Company Number: None

PATIENT
  Sex: Female
  Weight: 117.9352 kg

DRUGS (1)
  1. CLINDAMYCIN [Suspect]
     Indication: INFECTION
     Dosage: 300 MG CAPSULES 1 EVERY 8 HR
     Dates: start: 20120220

REACTIONS (9)
  - LYMPHADENOPATHY [None]
  - PARAESTHESIA ORAL [None]
  - CHEST DISCOMFORT [None]
  - ERUCTATION [None]
  - OROPHARYNGEAL PAIN [None]
  - FOREIGN BODY [None]
  - DYSPNOEA [None]
  - DYSPHAGIA [None]
  - CHEST PAIN [None]
